FAERS Safety Report 25191005 (Version 3)
Quarter: 2025Q2

REPORT INFORMATION
  Report Type: Report from Study
  Country: US (occurrence: US)
  Receive Date: 20250411
  Receipt Date: 20250618
  Transmission Date: 20250717
  Serious: Yes (Other)
  Sender: NOVARTIS
  Company Number: US-002147023-NVSC2025US059637

PATIENT
  Age: 4 Year
  Sex: Female

DRUGS (3)
  1. ILARIS [Suspect]
     Active Substance: CANAKINUMAB
     Indication: Cryopyrin associated periodic syndrome
     Route: 058
     Dates: start: 20241012, end: 20250203
  2. ILARIS [Suspect]
     Active Substance: CANAKINUMAB
     Dosage: 75 MG, QMO
     Route: 058
  3. ILARIS [Suspect]
     Active Substance: CANAKINUMAB
     Route: 058
     Dates: start: 20250529

REACTIONS (4)
  - Pneumonia streptococcal [Unknown]
  - Haemophilus infection [Unknown]
  - Pyrexia [Unknown]
  - Inappropriate schedule of product administration [Not Recovered/Not Resolved]

NARRATIVE: CASE EVENT DATE: 20250529
